FAERS Safety Report 5799461-5 (Version None)
Quarter: 2008Q3

REPORT INFORMATION
  Report Type: 
  Country: None (occurrence: None)
  Receive Date: 20080701
  Receipt Date: 20080701
  Transmission Date: 20090109
  Serious: No
  Sender: FDA-Public Use
  Company Number: None

PATIENT
  Age: 67 Year
  Sex: Male

DRUGS (2)
  1. METRONIDAZOLE HCL [Suspect]
     Indication: LIVER ABSCESS
     Dosage: 500 MG QID PO
     Route: 048
     Dates: start: 20080325, end: 20080328
  2. CIPROFLOXACIN [Suspect]
     Indication: LIVER ABSCESS
     Dosage: 500 MG BID PO
     Route: 048
     Dates: start: 20080325, end: 20080328

REACTIONS (3)
  - ANAEMIA [None]
  - LEUKOPENIA [None]
  - THROMBOCYTOPENIA [None]
